FAERS Safety Report 9523055 (Version 1)
Quarter: 2013Q1

REPORT INFORMATION
  Report Type: Spontaneous
  Country: US (occurrence: None)
  Receive Date: 20130305
  Receipt Date: 20130305
  Transmission Date: 20140127
  Serious: Yes (Other)
  Sender: FDA-Public Use
  Company Number: 163-21880-12033017

PATIENT
  Sex: 0

DRUGS (1)
  1. REVLIMID [Suspect]
     Indication: CHRONIC LYMPHOCYTIC LEUKAEMIA
     Route: 048

REACTIONS (14)
  - Pulmonary embolism [None]
  - Neutropenia [None]
  - Thrombocytopenia [None]
  - Pneumonia respiratory syncytial viral [None]
  - Pneumonia pseudomonas aeruginosa [None]
  - Pneumonia [None]
  - Genital herpes [None]
  - Sinusitis [None]
  - Fatigue [None]
  - Rash [None]
  - Constipation [None]
  - Diarrhoea [None]
  - Cough [None]
  - Pain [None]
